FAERS Safety Report 21573061 (Version 1)
Quarter: 2022Q4

REPORT INFORMATION
  Report Type: Spontaneous
  Country: US (occurrence: US)
  Receive Date: 20221109
  Receipt Date: 20221109
  Transmission Date: 20230113
  Serious: Yes (Death, Hospitalization)
  Sender: FDA-Public Use
  Company Number: US-PFIZER INC-PV202200094728

PATIENT
  Age: 59 Year
  Sex: Female
  Weight: 54 kg

DRUGS (5)
  1. TOPOTECAN HYDROCHLORIDE [Suspect]
     Active Substance: TOPOTECAN HYDROCHLORIDE
     Dosage: 2.45 MG (2.45 MG 5 X WEEKLY INFUSIONS)
  2. SAMSCA [Suspect]
     Active Substance: TOLVAPTAN
     Indication: Antidiuretic hormone abnormality
     Dosage: 15 MG, DAILY
     Route: 048
     Dates: start: 20220121
  3. SAMSCA [Suspect]
     Active Substance: TOLVAPTAN
     Dosage: 30 MG, DAILY
  4. SAMSCA [Suspect]
     Active Substance: TOLVAPTAN
     Dosage: 15 MG, DAILY
     Route: 048
  5. UDENYCA [Suspect]
     Active Substance: PEGFILGRASTIM-CBQV
     Dosage: 6 NG, MONTHLY (6 NG, QM (EVERY MORNING)
     Route: 058

REACTIONS (16)
  - Neoplasm recurrence [Fatal]
  - Mental status changes [Unknown]
  - Blood sodium decreased [Unknown]
  - Neoplasm progression [Unknown]
  - Product use issue [Unknown]
  - Product dose omission issue [Unknown]
  - Withdrawal syndrome [Unknown]
  - Feeling abnormal [Unknown]
  - Hypotension [Unknown]
  - Vomiting [Unknown]
  - Back pain [Unknown]
  - Weight decreased [Unknown]
  - Diarrhoea [Unknown]
  - Asthenia [Unknown]
  - Nausea [Unknown]
  - Decreased appetite [Unknown]
